FAERS Safety Report 6241584-0 (Version None)
Quarter: 2009Q2

REPORT INFORMATION
  Report Type: 
  Country: None (occurrence: None)
  Receive Date: 20090623
  Receipt Date: 20051228
  Transmission Date: 20091009
  Serious: Yes (Life-Threatening, Hospitalization, Other)
  Sender: FDA-Public Use
  Company Number: AU-ROCHE-379644

PATIENT
  Sex: Female

DRUGS (74)
  1. DACLIZUMAB [Suspect]
     Dosage: BASELINE VISIT
     Route: 042
     Dates: start: 20040609, end: 20040609
  2. DACLIZUMAB [Suspect]
     Dosage: WEEK 2, 4, 6 AND 8
     Route: 042
     Dates: start: 20040622, end: 20040805
  3. MYCOPHENOLATE MOFETIL [Suspect]
     Route: 048
     Dates: start: 20040609
  4. MYCOPHENOLATE MOFETIL [Suspect]
     Route: 048
     Dates: start: 20040618
  5. MYCOPHENOLATE MOFETIL [Suspect]
     Route: 048
     Dates: start: 20040718, end: 20040809
  6. MYCOPHENOLATE MOFETIL [Suspect]
     Route: 048
     Dates: start: 20040810
  7. MYCOPHENOLATE MOFETIL [Suspect]
     Route: 048
     Dates: start: 20040820
  8. MYCOPHENOLATE MOFETIL [Suspect]
     Route: 048
     Dates: start: 20040906
  9. MYCOPHENOLATE MOFETIL [Suspect]
     Route: 048
     Dates: start: 20040907, end: 20041025
  10. MYCOPHENOLATE MOFETIL [Suspect]
     Route: 048
     Dates: start: 20041101
  11. MYCOPHENOLATE MOFETIL [Suspect]
     Route: 048
     Dates: start: 20041216
  12. MYCOPHENOLATE MOFETIL [Suspect]
     Route: 048
     Dates: start: 20041224, end: 20041225
  13. MYCOPHENOLATE MOFETIL [Suspect]
     Route: 048
     Dates: start: 20041231
  14. MYCOPHENOLATE MOFETIL [Suspect]
     Route: 048
     Dates: start: 20050103, end: 20050211
  15. MYCOPHENOLATE MOFETIL [Suspect]
     Route: 048
     Dates: end: 20050227
  16. MYCOPHENOLATE MOFETIL [Suspect]
     Route: 048
     Dates: start: 20051102
  17. TACROLIMUS [Suspect]
     Route: 048
     Dates: start: 20040809, end: 20050303
  18. TACROLIMUS [Suspect]
     Route: 048
     Dates: end: 20051025
  19. TACROLIMUS [Suspect]
     Route: 048
     Dates: start: 20051119
  20. TACROLIMUS [Suspect]
     Route: 048
     Dates: start: 20060428
  21. TACROLIMUS [Suspect]
     Route: 048
     Dates: start: 20070227
  22. TACROLIMUS [Suspect]
     Route: 048
     Dates: start: 20040609, end: 20040609
  23. CYCLOSPORINE [Suspect]
     Route: 048
     Dates: start: 20050517, end: 20050621
  24. PREDNISONE [Suspect]
     Route: 048
     Dates: start: 20040612, end: 20041022
  25. PREDNISONE [Suspect]
     Route: 048
     Dates: start: 20041024, end: 20041026
  26. PREDNISONE [Suspect]
     Route: 048
     Dates: start: 20041029
  27. PREDNISONE [Suspect]
     Route: 048
     Dates: start: 20050518
  28. PREDNISONE [Suspect]
     Route: 048
     Dates: start: 20051121
  29. SIROLIMUS [Suspect]
     Route: 048
     Dates: start: 20040609, end: 20041223
  30. SIROLIMUS [Suspect]
     Route: 048
     Dates: start: 20041224, end: 20041230
  31. METHYLPREDNISOLONE [Suspect]
     Route: 042
     Dates: start: 20040609, end: 20040612
  32. METHYLPREDNISOLONE [Suspect]
     Route: 042
     Dates: start: 20040804, end: 20040809
  33. METHYLPREDNISOLONE [Suspect]
     Route: 042
     Dates: start: 20040819, end: 20040823
  34. METHYLPREDNISOLONE [Suspect]
     Route: 042
     Dates: start: 20040929, end: 20041002
  35. METHYLPREDNISOLONE [Suspect]
     Route: 042
     Dates: start: 20041022, end: 20041024
  36. METHYLPREDNISOLONE [Suspect]
     Route: 042
     Dates: start: 20050305, end: 20050518
  37. METHYLPREDNISOLONE [Suspect]
     Route: 042
     Dates: start: 20051117, end: 20051120
  38. OMEPRAZOLE [Concomitant]
     Route: 048
     Dates: start: 20040902
  39. NORFLOXACIN [Concomitant]
     Route: 048
     Dates: start: 20040903
  40. VALACYCLOVIR [Concomitant]
     Route: 048
     Dates: start: 20040615, end: 20040622
  41. VALACYCLOVIR [Concomitant]
     Route: 048
     Dates: start: 20040629
  42. LEVOTHYROXINE SODIUM [Concomitant]
     Route: 048
     Dates: start: 20040901
  43. CALCITRIOL [Concomitant]
     Route: 048
  44. ATENOLOL [Concomitant]
     Route: 048
     Dates: start: 20050316
  45. ATENOLOL [Concomitant]
     Route: 048
     Dates: start: 20051115
  46. LIPITOR [Concomitant]
     Route: 048
     Dates: start: 20040629
  47. LASIX [Concomitant]
     Route: 048
     Dates: start: 20040713
  48. SLOW-K [Concomitant]
     Route: 048
     Dates: end: 20040901
  49. ACTRAPID [Concomitant]
     Route: 058
     Dates: start: 20050226, end: 20050303
  50. ACTRAPID [Concomitant]
     Route: 058
     Dates: start: 20050305
  51. ACTRAPID [Concomitant]
     Route: 058
     Dates: start: 20060203
  52. ACTRAPID [Concomitant]
     Route: 058
     Dates: start: 20060605
  53. ACTRAPID [Concomitant]
     Route: 058
     Dates: start: 20061211
  54. ADALAT [Concomitant]
     Dosage: DRUG REPORTED: ADALAT SR
     Dates: start: 20061009
  55. ARANESP [Concomitant]
     Route: 058
     Dates: start: 20040803, end: 20040920
  56. ARANESP [Concomitant]
     Route: 058
     Dates: start: 20041120, end: 20050816
  57. ARANESP [Concomitant]
     Route: 058
     Dates: start: 20051219, end: 20060213
  58. ARANESP [Concomitant]
     Route: 058
     Dates: start: 20060327
  59. ATGAM [Concomitant]
     Route: 042
     Dates: start: 20041025, end: 20041031
  60. AZATHIOPRINE [Concomitant]
     Dosage: DRUG: AZATHIPPRINE
     Route: 048
     Dates: start: 20050531
  61. DARBEPOETIN ALFA [Concomitant]
     Route: 058
     Dates: start: 20040803
  62. DIAMICRON [Concomitant]
     Route: 048
     Dates: start: 20050520
  63. METRONIDAZOLE [Concomitant]
     Route: 042
     Dates: start: 20050305, end: 20050422
  64. METRONIDAZOLE [Concomitant]
     Route: 042
     Dates: start: 20050429, end: 20050429
  65. METRONIDAZOLE [Concomitant]
     Route: 042
     Dates: end: 20050504
  66. METRONIDAZOLE [Concomitant]
     Route: 048
     Dates: start: 20050423, end: 20050428
  67. METRONIDAZOLE [Concomitant]
     Route: 048
     Dates: end: 20050429
  68. METRONIDAZOLE [Concomitant]
     Route: 048
     Dates: start: 20050506, end: 20050514
  69. NYSTATIN [Concomitant]
     Route: 048
     Dates: start: 20040617, end: 20040719
  70. PENTAMIDINE ISETHIONATE [Concomitant]
     Route: 055
     Dates: start: 20040616
  71. PRAZSOIN HCL [Concomitant]
     Route: 048
     Dates: start: 20050506, end: 20050517
  72. PROTOFERRON [Concomitant]
     Dosage: DRUG: PROTOPHANE
     Route: 058
     Dates: start: 20050228, end: 20050304
  73. PROTOFERRON [Concomitant]
     Route: 058
     Dates: start: 20050305
  74. VALGANCICLOVIR HCL [Concomitant]
     Route: 048
     Dates: start: 20050226, end: 20050301

REACTIONS (11)
  - ANAEMIA [None]
  - BLEEDING TIME PROLONGED [None]
  - COLON CANCER [None]
  - EPSTEIN-BARR VIRUS ASSOCIATED LYMPHOPROLIFERATIVE DISORDER [None]
  - HEADACHE [None]
  - HYDRONEPHROSIS [None]
  - HYPERTENSION [None]
  - LEUKOPENIA [None]
  - PYREXIA [None]
  - SQUAMOUS CELL CARCINOMA OF SKIN [None]
  - URETERIC OBSTRUCTION [None]
